FAERS Safety Report 14564248 (Version 1)
Quarter: 2018Q1

REPORT INFORMATION
  Report Type: Spontaneous
  Country: JP (occurrence: JP)
  Receive Date: 20180222
  Receipt Date: 20180222
  Transmission Date: 20180509
  Serious: Yes (Death)
  Sender: FDA-Public Use
  Company Number: JP-FRESENIUS KABI-FK201802039

PATIENT
  Age: 69 Year
  Sex: Female

DRUGS (3)
  1. METHYLPREDNISOLONE (MANUFACTURER UNKNOWN) [Suspect]
     Active Substance: METHYLPREDNISOLONE
     Indication: IMMUNOSUPPRESSANT DRUG THERAPY
     Route: 042
  2. PREDNISOLONE (MANUFACTURER UNKNOWN) [Suspect]
     Active Substance: PREDNISOLONE
     Indication: IMMUNOSUPPRESSANT DRUG THERAPY
     Route: 065
  3. PREDNISOLONE (MANUFACTURER UNKNOWN) [Suspect]
     Active Substance: PREDNISOLONE
     Indication: RASH
     Route: 065

REACTIONS (1)
  - Bronchopulmonary aspergillosis [Fatal]
